FAERS Safety Report 25752577 (Version 1)
Quarter: 2025Q3

REPORT INFORMATION
  Report Type: Spontaneous
  Country: EU (occurrence: EU)
  Receive Date: 20250902
  Receipt Date: 20250902
  Transmission Date: 20251021
  Serious: Yes (Hospitalization, Other)
  Sender: MYLAN
  Company Number: EU-MYLANLABS-2025M1074676

PATIENT
  Age: 64 Year
  Sex: Male

DRUGS (96)
  1. OXALIPLATIN [Suspect]
     Active Substance: OXALIPLATIN
     Indication: Gastric cancer
  2. OXALIPLATIN [Suspect]
     Active Substance: OXALIPLATIN
     Indication: Skin test
  3. OXALIPLATIN [Suspect]
     Active Substance: OXALIPLATIN
     Indication: Metastatic gastric cancer
     Route: 065
  4. OXALIPLATIN [Suspect]
     Active Substance: OXALIPLATIN
     Indication: Skin test
     Route: 065
  5. OXALIPLATIN [Suspect]
     Active Substance: OXALIPLATIN
  6. OXALIPLATIN [Suspect]
     Active Substance: OXALIPLATIN
  7. OXALIPLATIN [Suspect]
     Active Substance: OXALIPLATIN
     Route: 065
  8. OXALIPLATIN [Suspect]
     Active Substance: OXALIPLATIN
     Route: 065
  9. OXALIPLATIN [Suspect]
     Active Substance: OXALIPLATIN
  10. OXALIPLATIN [Suspect]
     Active Substance: OXALIPLATIN
     Route: 065
  11. OXALIPLATIN [Suspect]
     Active Substance: OXALIPLATIN
  12. OXALIPLATIN [Suspect]
     Active Substance: OXALIPLATIN
     Route: 065
  13. DOCETAXEL [Suspect]
     Active Substance: DOCETAXEL
     Indication: Gastric cancer
  14. DOCETAXEL [Suspect]
     Active Substance: DOCETAXEL
     Indication: Skin test
  15. DOCETAXEL [Suspect]
     Active Substance: DOCETAXEL
     Indication: Skin test
     Route: 023
  16. DOCETAXEL [Suspect]
     Active Substance: DOCETAXEL
     Route: 023
  17. DOCETAXEL [Suspect]
     Active Substance: DOCETAXEL
  18. DOCETAXEL [Suspect]
     Active Substance: DOCETAXEL
  19. DOCETAXEL [Suspect]
     Active Substance: DOCETAXEL
     Route: 065
  20. DOCETAXEL [Suspect]
     Active Substance: DOCETAXEL
     Route: 065
  21. CISPLATIN [Suspect]
     Active Substance: CISPLATIN
     Indication: Skin test
  22. CISPLATIN [Suspect]
     Active Substance: CISPLATIN
     Indication: Skin test
  23. CISPLATIN [Suspect]
     Active Substance: CISPLATIN
     Indication: Gastric cancer
     Route: 023
  24. CISPLATIN [Suspect]
     Active Substance: CISPLATIN
     Route: 023
  25. CISPLATIN [Suspect]
     Active Substance: CISPLATIN
  26. CISPLATIN [Suspect]
     Active Substance: CISPLATIN
  27. CISPLATIN [Suspect]
     Active Substance: CISPLATIN
     Route: 065
  28. CISPLATIN [Suspect]
     Active Substance: CISPLATIN
     Route: 065
  29. CISPLATIN [Suspect]
     Active Substance: CISPLATIN
  30. CISPLATIN [Suspect]
     Active Substance: CISPLATIN
     Route: 065
  31. CISPLATIN [Suspect]
     Active Substance: CISPLATIN
  32. CISPLATIN [Suspect]
     Active Substance: CISPLATIN
     Route: 065
  33. CARBOPLATIN [Suspect]
     Active Substance: CARBOPLATIN
     Indication: Skin test
  34. CARBOPLATIN [Suspect]
     Active Substance: CARBOPLATIN
     Indication: Skin test
  35. CARBOPLATIN [Suspect]
     Active Substance: CARBOPLATIN
     Indication: Gastric cancer
     Route: 023
  36. CARBOPLATIN [Suspect]
     Active Substance: CARBOPLATIN
     Route: 023
  37. CARBOPLATIN [Suspect]
     Active Substance: CARBOPLATIN
  38. CARBOPLATIN [Suspect]
     Active Substance: CARBOPLATIN
  39. CARBOPLATIN [Suspect]
     Active Substance: CARBOPLATIN
     Route: 065
  40. CARBOPLATIN [Suspect]
     Active Substance: CARBOPLATIN
     Route: 065
  41. CARBOPLATIN [Suspect]
     Active Substance: CARBOPLATIN
  42. CARBOPLATIN [Suspect]
     Active Substance: CARBOPLATIN
     Route: 065
  43. CARBOPLATIN [Suspect]
     Active Substance: CARBOPLATIN
  44. CARBOPLATIN [Suspect]
     Active Substance: CARBOPLATIN
     Route: 065
  45. TAXOTERE [Suspect]
     Active Substance: DOCETAXEL
     Indication: Metastatic gastric cancer
  46. TAXOTERE [Suspect]
     Active Substance: DOCETAXEL
     Route: 065
  47. TAXOTERE [Suspect]
     Active Substance: DOCETAXEL
     Route: 065
  48. TAXOTERE [Suspect]
     Active Substance: DOCETAXEL
  49. FLUOROURACIL [Concomitant]
     Active Substance: FLUOROURACIL
     Indication: Gastric cancer
  50. FLUOROURACIL [Concomitant]
     Active Substance: FLUOROURACIL
     Indication: Skin test
  51. FLUOROURACIL [Concomitant]
     Active Substance: FLUOROURACIL
     Indication: Skin test
     Route: 023
  52. FLUOROURACIL [Concomitant]
     Active Substance: FLUOROURACIL
     Indication: Metastatic gastric cancer
     Route: 023
  53. FLUOROURACIL [Concomitant]
     Active Substance: FLUOROURACIL
  54. FLUOROURACIL [Concomitant]
     Active Substance: FLUOROURACIL
  55. FLUOROURACIL [Concomitant]
     Active Substance: FLUOROURACIL
     Route: 065
  56. FLUOROURACIL [Concomitant]
     Active Substance: FLUOROURACIL
     Route: 065
  57. FLUOROURACIL [Concomitant]
     Active Substance: FLUOROURACIL
  58. FLUOROURACIL [Concomitant]
     Active Substance: FLUOROURACIL
     Route: 065
  59. FLUOROURACIL [Concomitant]
     Active Substance: FLUOROURACIL
  60. FLUOROURACIL [Concomitant]
     Active Substance: FLUOROURACIL
     Route: 065
  61. LEUCOVORIN CALCIUM [Concomitant]
     Active Substance: LEUCOVORIN CALCIUM
     Indication: Gastric cancer
  62. LEUCOVORIN CALCIUM [Concomitant]
     Active Substance: LEUCOVORIN CALCIUM
     Indication: Skin test
  63. LEUCOVORIN CALCIUM [Concomitant]
     Active Substance: LEUCOVORIN CALCIUM
     Indication: Skin test
     Route: 065
  64. LEUCOVORIN CALCIUM [Concomitant]
     Active Substance: LEUCOVORIN CALCIUM
     Indication: Metastatic gastric cancer
     Route: 065
  65. LEUCOVORIN CALCIUM [Concomitant]
     Active Substance: LEUCOVORIN CALCIUM
  66. LEUCOVORIN CALCIUM [Concomitant]
     Active Substance: LEUCOVORIN CALCIUM
  67. LEUCOVORIN CALCIUM [Concomitant]
     Active Substance: LEUCOVORIN CALCIUM
     Route: 023
  68. LEUCOVORIN CALCIUM [Concomitant]
     Active Substance: LEUCOVORIN CALCIUM
     Route: 023
  69. LEUCOVORIN CALCIUM [Concomitant]
     Active Substance: LEUCOVORIN CALCIUM
  70. LEUCOVORIN CALCIUM [Concomitant]
     Active Substance: LEUCOVORIN CALCIUM
     Route: 065
  71. LEUCOVORIN CALCIUM [Concomitant]
     Active Substance: LEUCOVORIN CALCIUM
  72. LEUCOVORIN CALCIUM [Concomitant]
     Active Substance: LEUCOVORIN CALCIUM
     Route: 065
  73. ONDANSETRON [Concomitant]
     Active Substance: ONDANSETRON
     Indication: Skin test
  74. ONDANSETRON [Concomitant]
     Active Substance: ONDANSETRON
     Indication: Skin test
  75. ONDANSETRON [Concomitant]
     Active Substance: ONDANSETRON
     Indication: Adjuvant therapy
     Route: 023
  76. ONDANSETRON [Concomitant]
     Active Substance: ONDANSETRON
     Route: 023
  77. ONDANSETRON [Concomitant]
     Active Substance: ONDANSETRON
  78. ONDANSETRON [Concomitant]
     Active Substance: ONDANSETRON
  79. ONDANSETRON [Concomitant]
     Active Substance: ONDANSETRON
     Route: 065
  80. ONDANSETRON [Concomitant]
     Active Substance: ONDANSETRON
     Route: 065
  81. ONDANSETRON [Concomitant]
     Active Substance: ONDANSETRON
  82. ONDANSETRON [Concomitant]
     Active Substance: ONDANSETRON
     Route: 065
  83. ONDANSETRON [Concomitant]
     Active Substance: ONDANSETRON
  84. ONDANSETRON [Concomitant]
     Active Substance: ONDANSETRON
     Route: 065
  85. METHYLPREDNISOLONE SODIUM SUCCINATE [Concomitant]
     Active Substance: METHYLPREDNISOLONE SODIUM SUCCINATE
     Indication: Skin test
  86. METHYLPREDNISOLONE SODIUM SUCCINATE [Concomitant]
     Active Substance: METHYLPREDNISOLONE SODIUM SUCCINATE
     Indication: Skin test
  87. METHYLPREDNISOLONE SODIUM SUCCINATE [Concomitant]
     Active Substance: METHYLPREDNISOLONE SODIUM SUCCINATE
     Indication: Adjuvant therapy
     Route: 023
  88. METHYLPREDNISOLONE SODIUM SUCCINATE [Concomitant]
     Active Substance: METHYLPREDNISOLONE SODIUM SUCCINATE
     Route: 023
  89. METHYLPREDNISOLONE SODIUM SUCCINATE [Concomitant]
     Active Substance: METHYLPREDNISOLONE SODIUM SUCCINATE
  90. METHYLPREDNISOLONE SODIUM SUCCINATE [Concomitant]
     Active Substance: METHYLPREDNISOLONE SODIUM SUCCINATE
  91. METHYLPREDNISOLONE SODIUM SUCCINATE [Concomitant]
     Active Substance: METHYLPREDNISOLONE SODIUM SUCCINATE
     Route: 065
  92. METHYLPREDNISOLONE SODIUM SUCCINATE [Concomitant]
     Active Substance: METHYLPREDNISOLONE SODIUM SUCCINATE
     Route: 065
  93. METHYLPREDNISOLONE SODIUM SUCCINATE [Concomitant]
     Active Substance: METHYLPREDNISOLONE SODIUM SUCCINATE
  94. METHYLPREDNISOLONE SODIUM SUCCINATE [Concomitant]
     Active Substance: METHYLPREDNISOLONE SODIUM SUCCINATE
     Route: 065
  95. METHYLPREDNISOLONE SODIUM SUCCINATE [Concomitant]
     Active Substance: METHYLPREDNISOLONE SODIUM SUCCINATE
  96. METHYLPREDNISOLONE SODIUM SUCCINATE [Concomitant]
     Active Substance: METHYLPREDNISOLONE SODIUM SUCCINATE
     Route: 065

REACTIONS (6)
  - Pruritus [Recovered/Resolved with Sequelae]
  - Rash maculo-papular [Recovered/Resolved with Sequelae]
  - Skin test positive [Unknown]
  - Type IV hypersensitivity reaction [Recovered/Resolved with Sequelae]
  - Rash [Unknown]
  - Off label use [Unknown]
